FAERS Safety Report 6298321-3 (Version None)
Quarter: 2009Q3

REPORT INFORMATION
  Report Type: 
  Country: None (occurrence: None)
  Receive Date: 20090805
  Receipt Date: 20090723
  Transmission Date: 20100115
  Serious: Yes (Other)
  Sender: FDA-Public Use
  Company Number: PHEH2009US08037

PATIENT
  Sex: Female

DRUGS (2)
  1. GLEEVEC [Suspect]
     Dosage: UNK
     Dates: start: 20090201
  2. GLEEVEC [Suspect]
     Dosage: 400 MG, UNK

REACTIONS (1)
  - SUBDURAL HAEMATOMA [None]
